FAERS Safety Report 5603217-3 (Version None)
Quarter: 2008Q1

REPORT INFORMATION
  Report Type: 
  Country: None (occurrence: None)
  Receive Date: 20080125
  Receipt Date: 20080115
  Transmission Date: 20080703
  Serious: Yes (Other)
  Sender: FDA-Public Use
  Company Number: JP-PFIZER INC-2008002867

PATIENT
  Sex: Male

DRUGS (4)
  1. DETRUSITOL SR [Suspect]
     Indication: HYPERTONIC BLADDER
     Route: 048
     Dates: start: 20071221, end: 20071222
  2. TAMSULOSIN HCL [Concomitant]
     Indication: BENIGN PROSTATIC HYPERPLASIA
     Route: 048
     Dates: start: 20060517, end: 20071228
  3. TAMSULOSIN HCL [Concomitant]
     Indication: CYSTITIS
  4. TAMSULOSIN HCL [Concomitant]
     Indication: PROSTATITIS

REACTIONS (1)
  - DYSPNOEA [None]
